FAERS Safety Report 13058139 (Version 1)
Quarter: 2016Q4

REPORT INFORMATION
  Report Type: Spontaneous
  Country: US (occurrence: US)
  Receive Date: 20161223
  Receipt Date: 20161223
  Transmission Date: 20170207
  Serious: Yes (Death)
  Sender: FDA-Public Use
  Company Number: US-DRREDDYS-USA/USA/15/0054729

PATIENT
  Age: 24 Year
  Sex: Male

DRUGS (9)
  1. CLOZAPINE. [Suspect]
     Active Substance: CLOZAPINE
     Indication: SOMATIC DELUSION
     Route: 065
  2. MODAFINIL. [Suspect]
     Active Substance: MODAFINIL
     Indication: SOMATIC DELUSION
     Route: 065
  3. MODAFINIL. [Suspect]
     Active Substance: MODAFINIL
     Indication: EMOTIONAL POVERTY
  4. CITALOPRAM [Suspect]
     Active Substance: CITALOPRAM HYDROBROMIDE
     Indication: DYSPHORIA
  5. MODAFINIL. [Suspect]
     Active Substance: MODAFINIL
     Indication: DYSPHORIA
  6. CITALOPRAM [Suspect]
     Active Substance: CITALOPRAM HYDROBROMIDE
     Indication: EMOTIONAL POVERTY
  7. CLOZAPINE. [Suspect]
     Active Substance: CLOZAPINE
     Indication: DYSPHORIA
  8. CITALOPRAM [Suspect]
     Active Substance: CITALOPRAM HYDROBROMIDE
     Indication: SOMATIC DELUSION
     Route: 065
  9. CLOZAPINE. [Suspect]
     Active Substance: CLOZAPINE
     Indication: EMOTIONAL POVERTY

REACTIONS (2)
  - Completed suicide [Fatal]
  - Sedation [Unknown]
